FAERS Safety Report 12100881 (Version 1)
Quarter: 2016Q1

REPORT INFORMATION
  Report Type: Spontaneous
  Country: US (occurrence: US)
  Receive Date: 20160222
  Receipt Date: 20160222
  Transmission Date: 20160526
  Serious: Yes (Hospitalization, Other)
  Sender: FDA-Public Use
  Company Number: US-TEVA-636157USA

PATIENT
  Age: 45 Year
  Sex: Male

DRUGS (4)
  1. XANAX [Concomitant]
     Active Substance: ALPRAZOLAM
     Route: 065
  2. COPAXONE [Suspect]
     Active Substance: GLATIRAMER ACETATE
     Indication: MULTIPLE SCLEROSIS
     Route: 058
     Dates: start: 20150313
  3. OXYCODONE [Concomitant]
     Active Substance: OXYCODONE
     Route: 065
  4. A/B OTIC [Concomitant]
     Route: 065

REACTIONS (2)
  - Multiple sclerosis relapse [Unknown]
  - Pain [Unknown]

NARRATIVE: CASE EVENT DATE: 201602
